FAERS Safety Report 10656110 (Version 1)
Quarter: 2014Q4

REPORT INFORMATION
  Report Type: Report from Study
  Country: KR (occurrence: KR)
  Receive Date: 20141216
  Receipt Date: 20141216
  Transmission Date: 20150529
  Serious: Yes (Hospitalization)
  Sender: FDA-Public Use
  Company Number: KR-SA-2014SA169442

PATIENT
  Age: 71 Year
  Sex: Female
  Weight: 65 kg

DRUGS (4)
  1. LANTUS [Suspect]
     Active Substance: INSULIN GLARGINE
     Indication: HYPERGLYCAEMIA
     Dosage: DOSE:8 INTERNATIONAL UNIT(S)/MILLILITRE
     Route: 058
     Dates: start: 2014
  2. APIDRA [Suspect]
     Active Substance: INSULIN GLULISINE
     Indication: HYPERGLYCAEMIA
     Dosage: DOSE:2 INTERNATIONAL UNIT(S)/MILLILITRE
     Route: 058
     Dates: start: 2014
  3. LANTUS [Suspect]
     Active Substance: INSULIN GLARGINE
     Indication: HYPERGLYCAEMIA
     Dosage: DOSE:12 INTERNATIONAL UNIT(S)/MILLILITRE
     Route: 058
     Dates: start: 20141031
  4. APIDRA [Suspect]
     Active Substance: INSULIN GLULISINE
     Indication: HYPERGLYCAEMIA
     Dosage: DOSE:4 INTERNATIONAL UNIT(S)/MILLILITRE
     Route: 058
     Dates: start: 20141031

REACTIONS (2)
  - Hypoaesthesia [Not Recovered/Not Resolved]
  - Blood glucose abnormal [Unknown]

NARRATIVE: CASE EVENT DATE: 20141201
